FAERS Safety Report 6270274-3 (Version None)
Quarter: 2009Q3

REPORT INFORMATION
  Report Type: 
  Country: None (occurrence: None)
  Receive Date: 20090716
  Receipt Date: 20090710
  Transmission Date: 20100115
  Serious: Yes (Other)
  Sender: FDA-Public Use
  Company Number: US-ELI_LILLY_AND_COMPANY-US200907002417

PATIENT
  Sex: Male

DRUGS (1)
  1. HUMALOG [Suspect]
     Dosage: UNK, UNK
     Dates: start: 20050101

REACTIONS (16)
  - ACCIDENT [None]
  - BLISTER [None]
  - CORNEAL TRANSPLANT [None]
  - DYSSTASIA [None]
  - FOOT OPERATION [None]
  - HYPERKERATOSIS [None]
  - HYPOACUSIS [None]
  - HYPOAESTHESIA [None]
  - IMPAIRED HEALING [None]
  - NEOPLASM MALIGNANT [None]
  - OPEN WOUND [None]
  - OSTEOMYELITIS [None]
  - SURGERY [None]
  - TOE AMPUTATION [None]
  - VISUAL ACUITY REDUCED [None]
  - WEIGHT DECREASED [None]
